FAERS Safety Report 8022782-2 (Version None)
Quarter: 2012Q1

REPORT INFORMATION
  Report Type: 
  Country: None (occurrence: None)
  Receive Date: 20120104
  Receipt Date: 20111227
  Transmission Date: 20120608
  Serious: Yes (Hospitalization, Disabling, Other)
  Sender: FDA-Public Use
  Company Number: US-MERCK-1110USA02741

PATIENT
  Age: 64 Year
  Sex: Female
  Weight: 88 kg

DRUGS (4)
  1. ONE-A-DAY ESSENTIAL VITAMINS [Concomitant]
     Route: 048
  2. ALENDRONATE SODIUM [Suspect]
     Indication: OSTEOPOROSIS PROPHYLAXIS
     Route: 048
     Dates: start: 20080305, end: 20110328
  3. FOSAMAX [Suspect]
     Indication: OSTEOPOROSIS
     Route: 048
     Dates: start: 20030804, end: 20110401
  4. FOSAMAX [Suspect]
     Indication: OSTEOPOROSIS PROPHYLAXIS
     Route: 048
     Dates: start: 20030804, end: 20110401

REACTIONS (22)
  - VENTRICULAR EXTRASYSTOLES [None]
  - LOW TURNOVER OSTEOPATHY [None]
  - FEMUR FRACTURE [None]
  - BACK DISORDER [None]
  - RHINITIS ALLERGIC [None]
  - OTITIS MEDIA CHRONIC [None]
  - TYPE V HYPERLIPIDAEMIA [None]
  - BRONCHITIS [None]
  - COUGH [None]
  - FALL [None]
  - ABDOMINAL ABSCESS [None]
  - URINARY INCONTINENCE [None]
  - FIBROCYSTIC BREAST DISEASE [None]
  - APPENDICITIS PERFORATED [None]
  - TINNITUS [None]
  - ARTHROPATHY [None]
  - DERMATITIS CONTACT [None]
  - DEPRESSION [None]
  - SENSORY LOSS [None]
  - PITUITARY TUMOUR BENIGN [None]
  - ESSENTIAL HYPERTENSION [None]
  - NEUROPATHY PERIPHERAL [None]
